FAERS Safety Report 7014772-3 (Version None)
Quarter: 2010Q3

REPORT INFORMATION
  Report Type: 
  Country: None (occurrence: None)
  Receive Date: 20100927
  Receipt Date: 20100917
  Transmission Date: 20110219
  Serious: No
  Sender: FDA-Public Use
  Company Number: US-B.I. PHARMACEUTICALS,INC./RIDGEFIELD-2010-BP-10690BP

PATIENT
  Sex: Female

DRUGS (8)
  1. SPIRIVA [Suspect]
     Indication: CHRONIC OBSTRUCTIVE PULMONARY DISEASE
     Dosage: 18 MCG
     Route: 055
     Dates: end: 20100901
  2. ADVAIR DISKUS 100/50 [Concomitant]
     Indication: CHRONIC OBSTRUCTIVE PULMONARY DISEASE
  3. AMLODIPINE [Concomitant]
     Indication: HYPERTENSION
  4. AMONIUM LACTATE [Concomitant]
     Indication: DRY SKIN
  5. LEVOTHYROXINE SODIUM [Concomitant]
     Indication: HYPOTHYROIDISM
  6. LISINOPRIL [Concomitant]
     Indication: HYPERTENSION
  7. THEOPHYLLINE [Concomitant]
     Indication: ASTHMA
  8. TRAZODONE HCL [Concomitant]
     Indication: INSOMNIA

REACTIONS (4)
  - BLOOD CHOLESTEROL INCREASED [None]
  - DEPRESSION [None]
  - DYSURIA [None]
  - GOUT [None]
